FAERS Safety Report 11832131 (Version 4)
Quarter: 2016Q1

REPORT INFORMATION
  Report Type: Spontaneous
  Country: US (occurrence: US)
  Receive Date: 20151214
  Receipt Date: 20160111
  Transmission Date: 20160525
  Serious: Yes (Hospitalization, Other)
  Sender: FDA-Public Use
  Company Number: US-PFIZER INC-2015422402

PATIENT
  Age: 91 Year
  Sex: Female

DRUGS (8)
  1. LASIX [Concomitant]
     Active Substance: FUROSEMIDE
     Dosage: UNK
     Dates: start: 2007
  2. PROCARDIA XL [Suspect]
     Active Substance: NIFEDIPINE
     Indication: ATRIAL FIBRILLATION
     Dosage: 60 MG, 1X/DAY (60 MG (AB 2) ONE A DAY)
     Dates: start: 2005
  3. TOPROL XL [Concomitant]
     Active Substance: METOPROLOL SUCCINATE
     Dosage: UNK
  4. POTASSIUM CL [Concomitant]
     Active Substance: POTASSIUM CHLORIDE
     Dosage: UNK
     Dates: start: 2007
  5. TIKOSYN [Suspect]
     Active Substance: DOFETILIDE
     Indication: ATRIAL FIBRILLATION
     Dosage: 500 UG, 2X/DAY (ONE CAPSULE BY MOUTH TWICE DAILY)
     Route: 048
     Dates: start: 2005
  6. PROCARDIA XL [Suspect]
     Active Substance: NIFEDIPINE
     Dosage: 30 MG, 1X/DAY
     Dates: start: 2005
  7. COUMADIN [Concomitant]
     Active Substance: WARFARIN SODIUM
     Dosage: UNK
     Dates: start: 2007
  8. SYNTHROID [Concomitant]
     Active Substance: LEVOTHYROXINE SODIUM
     Dosage: UNK
     Dates: start: 2004

REACTIONS (2)
  - Fall [Recovered/Resolved]
  - Hip fracture [Recovered/Resolved]

NARRATIVE: CASE EVENT DATE: 20150829
